FAERS Safety Report 20959807 (Version 1)
Quarter: 2022Q2

REPORT INFORMATION
  Report Type: Spontaneous
  Country: CA (occurrence: CA)
  Receive Date: 20220614
  Receipt Date: 20220614
  Transmission Date: 20220721
  Serious: Yes (Other)
  Sender: FDA-Public Use
  Company Number: CA-JNJFOC-20220613738

PATIENT
  Sex: Female

DRUGS (1)
  1. ULTRAM [Suspect]
     Active Substance: TRAMADOL HYDROCHLORIDE
     Indication: Product used for unknown indication
     Route: 048

REACTIONS (20)
  - Incontinence [Unknown]
  - Weight increased [Unknown]
  - Drug dependence [Unknown]
  - Irritability [Unknown]
  - Vision blurred [Unknown]
  - Mood swings [Unknown]
  - Distractibility [Unknown]
  - Loss of libido [Unknown]
  - Sleep apnoea syndrome [Unknown]
  - Tremor [Unknown]
  - Abdominal pain upper [Unknown]
  - Anxiety [Unknown]
  - Confusional state [Unknown]
  - Constipation [Unknown]
  - Depression [Unknown]
  - Diarrhoea [Unknown]
  - Headache [Unknown]
  - Vomiting [Unknown]
  - Weight decreased [Unknown]
  - Withdrawal syndrome [Unknown]
